FAERS Safety Report 8366015-6 (Version None)
Quarter: 2012Q2

REPORT INFORMATION
  Report Type: 
  Country: None (occurrence: None)
  Receive Date: 20120517
  Receipt Date: 20120514
  Transmission Date: 20120825
  Serious: No
  Sender: FDA-Public Use
  Company Number: US-PFIZER INC-2012081055

PATIENT
  Sex: Female
  Weight: 57.143 kg

DRUGS (14)
  1. LISINOPRIL [Concomitant]
     Indication: HYPERTENSION
     Dosage: UNK
  2. IBUPROFEN (ADVIL) [Suspect]
     Indication: MULTIPLE SCLEROSIS
  3. IBUPROFEN (ADVIL) [Suspect]
  4. CALCIUM [Concomitant]
     Dosage: UNK
  5. IBUPROFEN (ADVIL) [Suspect]
  6. LEVOTHYROXINE [Concomitant]
     Indication: HYPERTHYROIDISM
     Dosage: UNK
  7. IBUPROFEN (ADVIL) [Suspect]
     Dosage: 200 MG, AS NEEDED
     Route: 048
     Dates: start: 20120301
  8. VALIUM [Concomitant]
     Indication: FEAR
  9. IBUPROFEN (ADVIL) [Suspect]
     Indication: FIBROMYALGIA
  10. IBUPROFEN (ADVIL) [Suspect]
     Indication: HEADACHE
     Dosage: 200 MG, AS NEEDED
     Route: 048
  11. VALIUM [Concomitant]
     Indication: ANXIETY
     Dosage: UNK
  12. VALIUM [Concomitant]
     Indication: NERVOUSNESS
  13. LOVASTATIN [Concomitant]
     Indication: BLOOD CHOLESTEROL INCREASED
     Dosage: UNK
  14. ALENDRONATE SODIUM [Concomitant]
     Dosage: UNK, WEEKLY

REACTIONS (1)
  - DRUG INEFFECTIVE [None]
